FAERS Safety Report 23514934 (Version 1)
Quarter: 2024Q1

REPORT INFORMATION
  Report Type: Spontaneous
  Country: BG (occurrence: BG)
  Receive Date: 20240212
  Receipt Date: 20240212
  Transmission Date: 20240410
  Serious: Yes (Life-Threatening, Hospitalization, Other)
  Sender: FDA-Public Use
  Company Number: BG-002147023-NVSC2024BG027151

PATIENT
  Age: 75 Year
  Sex: Female

DRUGS (8)
  1. ELTROMBOPAG OLAMINE [Suspect]
     Active Substance: ELTROMBOPAG OLAMINE
     Indication: Thrombocytopenia
     Dosage: 2 TABLETS, QD
     Route: 048
     Dates: start: 20180511, end: 201806
  2. ELTROMBOPAG OLAMINE [Suspect]
     Active Substance: ELTROMBOPAG OLAMINE
     Dosage: 1 TABLET, QD
     Route: 048
     Dates: start: 201806, end: 201910
  3. ELTROMBOPAG OLAMINE [Suspect]
     Active Substance: ELTROMBOPAG OLAMINE
     Dosage: 3 TABLETS, QD
     Route: 048
     Dates: start: 201910, end: 202103
  4. ELTROMBOPAG OLAMINE [Suspect]
     Active Substance: ELTROMBOPAG OLAMINE
     Dosage: 2 TABLETS, QD
     Route: 048
     Dates: start: 202103, end: 202107
  5. ELTROMBOPAG OLAMINE [Suspect]
     Active Substance: ELTROMBOPAG OLAMINE
     Dosage: 1 TABLET, QD
     Route: 048
     Dates: start: 202107, end: 202312
  6. PIRACETAM [Concomitant]
     Active Substance: PIRACETAM
     Indication: Product used for unknown indication
     Dosage: 800 MG X 1 TABLET.
     Route: 065
  7. DIETARY SUPPLEMENT\HERBALS\MILK THISTLE [Concomitant]
     Active Substance: MILK THISTLE
     Indication: Product used for unknown indication
     Dosage: 3X2 COATED TABLETS
     Route: 065
  8. LOSARTAN POTASSIUM [Concomitant]
     Active Substance: LOSARTAN POTASSIUM
     Indication: Product used for unknown indication
     Dosage: 50 MG X1 TABLET DAILY
     Route: 065

REACTIONS (5)
  - Thrombocytopenia [Recovering/Resolving]
  - Haemorrhagic diathesis [Unknown]
  - Ecchymosis [Unknown]
  - Extravasation blood [Unknown]
  - Aortic stenosis [Unknown]

NARRATIVE: CASE EVENT DATE: 20191001
